FAERS Safety Report 22612349 (Version 2)
Quarter: 2023Q2

REPORT INFORMATION
  Report Type: Report from Study
  Country: EG (occurrence: EG)
  Receive Date: 20230617
  Receipt Date: 20230623
  Transmission Date: 20230722
  Serious: Yes (Other)
  Sender: FDA-Public Use
  Company Number: EG-002147023-NVSC2023EG135262

PATIENT
  Age: 52 Year
  Sex: Male

DRUGS (8)
  1. COSENTYX [Suspect]
     Active Substance: SECUKINUMAB
     Indication: Psoriasis
     Dosage: 150 MG, QW (WEEKLY FOR 1 MONTH)  (STARTED ON END OF 2021)
     Route: 065
     Dates: start: 2021, end: 202212
  2. COSENTYX [Suspect]
     Active Substance: SECUKINUMAB
     Indication: Prophylaxis
     Dosage: 150 MG, QMO (MONTHLY FOR 3 MONTHS)
     Route: 065
     Dates: start: 202207, end: 202212
  3. COSENTYX [Suspect]
     Active Substance: SECUKINUMAB
     Dosage: UNK, Q3MO (2 PREFILLED PENS EVERY 3 MONTHS FOR PROPHYLAXIS
     Route: 065
  4. COSENTYX [Suspect]
     Active Substance: SECUKINUMAB
     Dosage: UNK UNK, QW (TWO PREFILLED PENS WEEKLY FOR TWO WEEKS)
     Route: 065
  5. FASTEL [Concomitant]
     Indication: Pruritus
     Dosage: UNK, QD (- ONCE AT NIGHT AT TIME OF SLEEP)
     Route: 048
     Dates: start: 202305
  6. OMEGA 3 [Concomitant]
     Active Substance: CAPSAICIN
     Indication: Medical diet
     Dosage: UNK, QD (ONCE AT NIGHT AT TIME OF SLEEP)
     Route: 065
     Dates: start: 202305
  7. VASELINE PURE [Concomitant]
     Active Substance: PETROLATUM
     Indication: Psoriasis
     Dosage: UNK (OINTMENTS)
     Route: 065
  8. ENBREL [Concomitant]
     Active Substance: ETANERCEPT
     Indication: Psoriasis
     Dosage: UNK (INEFFECTIVE)
     Route: 065
     Dates: start: 20230607

REACTIONS (9)
  - Psoriasis [Recovered/Resolved]
  - Erythema [Not Recovered/Not Resolved]
  - Pruritus [Not Recovered/Not Resolved]
  - Skin exfoliation [Not Recovered/Not Resolved]
  - Temperature intolerance [Not Recovered/Not Resolved]
  - Dysstasia [Not Recovered/Not Resolved]
  - General physical condition abnormal [Not Recovered/Not Resolved]
  - Inappropriate schedule of product administration [Unknown]
  - Product use in unapproved indication [Unknown]

NARRATIVE: CASE EVENT DATE: 20230301
